FAERS Safety Report 16222732 (Version 1)
Quarter: 2019Q2

REPORT INFORMATION
  Report Type: Spontaneous
  Country: TW (occurrence: TW)
  Receive Date: 20190422
  Receipt Date: 20190422
  Transmission Date: 20190711
  Serious: Yes (Hospitalization)
  Sender: FDA-Public Use
  Company Number: TW-GLAXOSMITHKLINE-TW2019GSK055761

PATIENT
  Age: 62 Year
  Sex: Female

DRUGS (1)
  1. NUCALA [Suspect]
     Active Substance: MEPOLIZUMAB
     Indication: PRODUCT USED FOR UNKNOWN INDICATION
     Dosage: 100 MG, Z (MONTHLY)
     Route: 058
     Dates: start: 20181122, end: 20190318

REACTIONS (5)
  - Herpes zoster [Unknown]
  - Pain [Unknown]
  - Abdominal pain upper [Unknown]
  - Oral candidiasis [Unknown]
  - Wheezing [Unknown]

NARRATIVE: CASE EVENT DATE: 20190321
